FAERS Safety Report 6255289-3 (Version None)
Quarter: 2009Q3

REPORT INFORMATION
  Report Type: 
  Country: None (occurrence: None)
  Receive Date: 20090702
  Receipt Date: 20090625
  Transmission Date: 20100115
  Serious: Yes (Other)
  Sender: FDA-Public Use
  Company Number: US-JNJFOC-20090609499

PATIENT
  Age: 18 Year
  Sex: Female

DRUGS (1)
  1. NECON-777 [Suspect]
     Indication: MENSTRUATION IRREGULAR
     Route: 048

REACTIONS (4)
  - ALOPECIA [None]
  - BLOOD CORTISOL INCREASED [None]
  - BLOOD IRON DECREASED [None]
  - OFF LABEL USE [None]
